FAERS Safety Report 17543384 (Version 1)
Quarter: 2020Q1

REPORT INFORMATION
  Report Type: Spontaneous
  Country: GB (occurrence: GB)
  Receive Date: 20200316
  Receipt Date: 20200316
  Transmission Date: 20200409
  Serious: Yes (Other)
  Sender: FDA-Public Use
  Company Number: GB-ABBVIE-20K-167-3317644-00

PATIENT
  Age: 57 Year
  Sex: Male

DRUGS (1)
  1. VENETOCLAX. [Suspect]
     Active Substance: VENETOCLAX
     Indication: B-CELL SMALL LYMPHOCYTIC LYMPHOMA
     Route: 048
     Dates: start: 2018

REACTIONS (5)
  - B-cell small lymphocytic lymphoma [Unknown]
  - Cytopenia [Unknown]
  - Plasma cell myeloma [Recovering/Resolving]
  - Off label use [Unknown]
  - Bone marrow failure [Unknown]
